FAERS Safety Report 11595155 (Version 2)
Quarter: 2015Q4

REPORT INFORMATION
  Report Type: Report from Study
  Country: US (occurrence: US)
  Receive Date: 20151006
  Receipt Date: 20151023
  Transmission Date: 20160304
  Serious: No
  Sender: FDA-Public Use
  Company Number: US-AMGEN-USASP2015101940

PATIENT
  Age: 47 Year
  Sex: Female
  Weight: 74.83 kg

DRUGS (6)
  1. ALLEGRA [Concomitant]
     Active Substance: FEXOFENADINE HYDROCHLORIDE
     Dosage: UNK
  2. CALTRATE                           /00944201/ [Concomitant]
     Dosage: UNK
  3. ENBREL [Suspect]
     Active Substance: ETANERCEPT
     Indication: RHEUMATOID ARTHRITIS
     Dosage: 50 MG, QWK
     Route: 058
     Dates: start: 20020101
  4. RESTASIS [Concomitant]
     Active Substance: CYCLOSPORINE
     Dosage: UNK
  5. HUMIRA [Suspect]
     Active Substance: ADALIMUMAB
     Indication: RHEUMATOID ARTHRITIS
     Dosage: UNK
     Route: 065
     Dates: start: 20150930
  6. AMBIEN [Concomitant]
     Active Substance: ZOLPIDEM TARTRATE
     Dosage: UNK

REACTIONS (6)
  - Drug effect incomplete [Unknown]
  - Dry eye [Unknown]
  - Injection site reaction [Not Recovered/Not Resolved]
  - Condition aggravated [Unknown]
  - Injection site erythema [Not Recovered/Not Resolved]
  - Drug ineffective [Unknown]

NARRATIVE: CASE EVENT DATE: 2015
